APPROVED DRUG PRODUCT: PRILOCAINE HYDROCHLORIDE
Active Ingredient: PRILOCAINE HYDROCHLORIDE
Strength: 4%
Dosage Form/Route: INJECTABLE;INJECTION
Application: A079235 | Product #001
Applicant: SEPTODONT INC
Approved: Sep 29, 2010 | RLD: No | RS: Yes | Type: RX